FAERS Safety Report 26091273 (Version 1)
Quarter: 2025Q4

REPORT INFORMATION
  Report Type: Spontaneous
  Country: EU (occurrence: EU)
  Receive Date: 20251126
  Receipt Date: 20251126
  Transmission Date: 20260117
  Serious: Yes (Death)
  Sender: ACCORD
  Company Number: None

PATIENT
  Age: 33 Year
  Sex: Male
  Weight: 65 kg

DRUGS (7)
  1. METHOTREXATE [Interacting]
     Active Substance: METHOTREXATE
     Indication: Acute lymphocytic leukaemia
     Dates: start: 20240923, end: 20250911
  2. PURINETHOL [Interacting]
     Active Substance: MERCAPTOPURINE
     Indication: Acute lymphocytic leukaemia
     Dates: start: 20240923, end: 20250911
  3. OXAZEPAM [Concomitant]
     Active Substance: OXAZEPAM
  4. ONDANSETRON [Concomitant]
     Active Substance: ONDANSETRON
     Dates: end: 20250911
  5. BIKTARVY [Concomitant]
     Active Substance: BICTEGRAVIR SODIUM\EMTRICITABINE\TENOFOVIR ALAFENAMIDE FUMARATE
  6. TADALAFIL [Concomitant]
     Active Substance: TADALAFIL
  7. PENTACARINAT [Concomitant]
     Active Substance: PENTAMIDINE ISETHIONATE
     Indication: Prophylaxis

REACTIONS (4)
  - Febrile bone marrow aplasia [Fatal]
  - Drug interaction [Fatal]
  - Mucosal inflammation [Fatal]
  - Colitis [Fatal]

NARRATIVE: CASE EVENT DATE: 20240923
